FAERS Safety Report 9022052 (Version 1)
Quarter: 2013Q1

REPORT INFORMATION
  Report Type: Spontaneous
  Country: US (occurrence: US)
  Receive Date: 20130118
  Receipt Date: 20130118
  Transmission Date: 20140127
  Serious: Yes (Hospitalization, Other)
  Sender: FDA-Public Use
  Company Number: US-BAYER-2013-005072

PATIENT
  Age: 37 Year
  Sex: Female
  Weight: 85.71 kg

DRUGS (22)
  1. YASMIN [Suspect]
     Dosage: UNK
  2. SYMBICORT [Concomitant]
     Dosage: 160/4.5 MG 2 PUFFS BID (TWICE DAILY)
     Dates: start: 20110817
  3. XOPENEX [Concomitant]
     Dosage: UNK UNK, PRN (AS NEEDED)
     Dates: start: 20110817
  4. ATENOLOL [Concomitant]
     Dosage: 50 MG, BID
     Dates: start: 20110817
  5. IMDUR [Concomitant]
     Dosage: 30 MG, AT BEDTIME
  6. CELEXA [Concomitant]
     Dosage: 40 MG, DAILY
     Dates: start: 20110817
  7. SEROQUEL [Concomitant]
     Dosage: 50 MG, AT BEDTIME
     Dates: start: 20110817
  8. PRILOSEC [Concomitant]
     Dosage: 20 MG, DAILY
     Dates: start: 20110817
  9. SIMVASTATIN [Concomitant]
     Dosage: 20 MG, AT BEDTIME
     Dates: start: 20110817
  10. ACCOLATE [Concomitant]
     Dosage: 20 MG, BID
     Dates: start: 20110817
  11. LACTOBACILLUS ACID [Concomitant]
     Dosage: 1 DAILY
     Dates: start: 20110817
  12. NEURONTIN [Concomitant]
     Dosage: 400 MG, BID
     Dates: start: 20110817
  13. CALCIUM CITRATE [Concomitant]
     Dosage: 500 MG, AT BEDTIME
     Dates: start: 20110817
  14. IMITREX [Concomitant]
     Indication: HEADACHE
     Dosage: UNK, PRN
     Dates: start: 20110817
  15. ASPIRIN [Concomitant]
     Dosage: 81 MG, DAILY
     Dates: start: 20110817
  16. MULTIVITAMINS [Concomitant]
     Dosage: UNK UNK, DAILY
     Dates: start: 20110817
  17. ZAFIRLUKAST [Concomitant]
     Dosage: UNK
  18. QUETIAPINE [Concomitant]
     Dosage: UNK
  19. PANTOPRAZOLE [Concomitant]
     Dosage: UNK
  20. GABAPENTIN [Concomitant]
     Dosage: UNK
  21. CITALOPRAM [Concomitant]
     Dosage: UNK
  22. COLACE [Concomitant]
     Dosage: UNK

REACTIONS (4)
  - Pulmonary embolism [None]
  - Deep vein thrombosis [None]
  - Thrombophlebitis superficial [None]
  - Off label use [None]
